FAERS Safety Report 17681995 (Version 1)
Quarter: 2020Q2

REPORT INFORMATION
  Report Type: Spontaneous
  Country: CA (occurrence: CA)
  Receive Date: 20200418
  Receipt Date: 20200418
  Transmission Date: 20200714
  Serious: Yes (Other)
  Sender: FDA-Public Use
  Company Number: CA-ROCHE-2584176

PATIENT
  Age: 66 Year
  Sex: Female

DRUGS (12)
  1. CETIRIZINE HYDROCHLORIDE. [Concomitant]
     Active Substance: CETIRIZINE HYDROCHLORIDE
  2. FLONASE [Concomitant]
     Active Substance: FLUTICASONE PROPIONATE
  3. MOMETASONE FUROATE. [Concomitant]
     Active Substance: MOMETASONE FUROATE
  4. SECTRAL [Concomitant]
     Active Substance: ACEBUTOLOL HYDROCHLORIDE
  5. ESBRIET [Suspect]
     Active Substance: PIRFENIDONE
     Route: 048
  6. ESTROGEL [Concomitant]
     Active Substance: ESTRADIOL
  7. ESBRIET [Suspect]
     Active Substance: PIRFENIDONE
     Indication: IDIOPATHIC PULMONARY FIBROSIS
     Route: 048
  8. PROGESTERONE. [Concomitant]
     Active Substance: PROGESTERONE
  9. ESBRIET [Suspect]
     Active Substance: PIRFENIDONE
     Route: 048
  10. REACTINE [CETIRIZINE HYDROCHLORIDE] [Concomitant]
     Active Substance: CETIRIZINE HYDROCHLORIDE
  11. ESBRIET [Suspect]
     Active Substance: PIRFENIDONE
     Route: 048
  12. ESBRIET [Suspect]
     Active Substance: PIRFENIDONE
     Route: 048

REACTIONS (8)
  - Viral infection [Not Recovered/Not Resolved]
  - Flatulence [Not Recovered/Not Resolved]
  - Lung diffusion test decreased [Not Recovered/Not Resolved]
  - Weight decreased [Not Recovered/Not Resolved]
  - Gastric disorder [Not Recovered/Not Resolved]
  - Dizziness [Not Recovered/Not Resolved]
  - Myocardial infarction [Not Recovered/Not Resolved]
  - Nausea [Not Recovered/Not Resolved]
